FAERS Safety Report 4900578-5 (Version None)
Quarter: 2006Q1

REPORT INFORMATION
  Report Type: 
  Country: None (occurrence: None)
  Receive Date: 20060201
  Receipt Date: 20060119
  Transmission Date: 20060701
  Serious: Yes (Hospitalization)
  Sender: FDA-Public Use
  Company Number: US200601003372

PATIENT
  Age: 51 Year
  Sex: Male

DRUGS (7)
  1. CYMBALTA [Suspect]
     Dosage: 60 MG, EACH EVENING,
  2. PRAMIPEXOLE (PRAMIPEXOLE) [Concomitant]
  3. ZOCOR [Concomitant]
  4. ZETIA [Concomitant]
  5. KLONOPIN [Concomitant]
  6. NORTRIPTYLINE HCL [Concomitant]
  7. PROTONIX [Concomitant]

REACTIONS (2)
  - SURGERY [None]
  - TACHYCARDIA [None]
